FAERS Safety Report 16290015 (Version 2)
Quarter: 2021Q1

REPORT INFORMATION
  Report Type: Spontaneous
  Country: US (occurrence: US)
  Receive Date: 20190509
  Receipt Date: 20210224
  Transmission Date: 20210419
  Serious: Yes (Death, Other)
  Sender: FDA-Public Use
  Company Number: US-ASTRAZENECA-2019SE66941

PATIENT
  Age: 834 Month
  Sex: Female

DRUGS (78)
  1. PROTONIX [Suspect]
     Active Substance: PANTOPRAZOLE SODIUM
     Indication: GASTROOESOPHAGEAL REFLUX DISEASE
     Route: 065
     Dates: start: 200909, end: 201409
  2. PROTONIX [Suspect]
     Active Substance: PANTOPRAZOLE SODIUM
     Indication: GASTROOESOPHAGEAL REFLUX DISEASE
     Dosage: GENERIC
     Route: 065
     Dates: start: 20120917, end: 20160809
  3. LORAZEPAM. [Concomitant]
     Active Substance: LORAZEPAM
  4. BUPROPION HYDROCHLORIDE. [Concomitant]
     Active Substance: BUPROPION HYDROCHLORIDE
  5. FLUTICASONE PROP [Concomitant]
     Active Substance: FLUTICASONE PROPIONATE
  6. METOPROLOL TARTRATE. [Concomitant]
     Active Substance: METOPROLOL TARTRATE
  7. AZITHROMYCIN ANHYDROUS. [Concomitant]
     Active Substance: AZITHROMYCIN ANHYDROUS
  8. PROAIR HFA [Concomitant]
     Active Substance: ALBUTEROL SULFATE
  9. PROPOFOL. [Concomitant]
     Active Substance: PROPOFOL
  10. PROMETHAZINE [Concomitant]
     Active Substance: PROMETHAZINE HYDROCHLORIDE
  11. SENOKOT [Concomitant]
     Active Substance: SENNOSIDES
  12. MIDAZOLAM. [Concomitant]
     Active Substance: MIDAZOLAM
  13. PROTONIX [Suspect]
     Active Substance: PANTOPRAZOLE SODIUM
     Indication: GASTROOESOPHAGEAL REFLUX DISEASE
     Route: 065
     Dates: start: 20140130, end: 20150205
  14. WARFARIN SODIUM. [Concomitant]
     Active Substance: WARFARIN SODIUM
  15. METHADONE HYDROCHLORIDE. [Concomitant]
     Active Substance: METHADONE HYDROCHLORIDE
  16. LEVEMIR [Concomitant]
     Active Substance: INSULIN DETEMIR
  17. DOXYCYCLINE HYCLATE. [Concomitant]
     Active Substance: DOXYCYCLINE HYCLATE
  18. CLINDAMYCIN HYDROCHLORIDE. [Concomitant]
     Active Substance: CLINDAMYCIN HYDROCHLORIDE
  19. OXYBUTYNIN. [Concomitant]
     Active Substance: OXYBUTYNIN CHLORIDE
  20. LIDOCAINE. [Concomitant]
     Active Substance: LIDOCAINE
  21. TRAMADOL HYDROCHLORIDE. [Concomitant]
     Active Substance: TRAMADOL HYDROCHLORIDE
  22. ETOMIDATE. [Concomitant]
     Active Substance: ETOMIDATE
  23. MAGNESIUM OXIDE. [Concomitant]
     Active Substance: MAGNESIUM OXIDE
  24. NEXIUM [Suspect]
     Active Substance: ESOMEPRAZOLE MAGNESIUM
     Indication: GASTROOESOPHAGEAL REFLUX DISEASE
     Route: 048
     Dates: start: 200909, end: 201409
  25. NEXIUM [Suspect]
     Active Substance: ESOMEPRAZOLE MAGNESIUM
     Indication: GASTROOESOPHAGEAL REFLUX DISEASE
     Route: 048
     Dates: start: 20050706, end: 20150122
  26. NEXIUM 24HR [Suspect]
     Active Substance: ESOMEPRAZOLE MAGNESIUM
     Indication: GASTROOESOPHAGEAL REFLUX DISEASE
     Route: 048
     Dates: start: 2015
  27. ZANTAC [Concomitant]
     Active Substance: RANITIDINE HYDROCHLORIDE
  28. ESTRADIOL. [Concomitant]
     Active Substance: ESTRADIOL
  29. GABAPENTIN. [Concomitant]
     Active Substance: GABAPENTIN
  30. AMLODIPINE BESYLATE. [Concomitant]
     Active Substance: AMLODIPINE BESYLATE
  31. IRON [Concomitant]
     Active Substance: IRON
  32. CRANBERRY. [Concomitant]
     Active Substance: CRANBERRY
  33. CARVEDILOL. [Concomitant]
     Active Substance: CARVEDILOL
     Indication: BETA GLOBULIN ABNORMAL
  34. SIMVASTATIN. [Concomitant]
     Active Substance: SIMVASTATIN
     Indication: DRUG DEPENDENCE
  35. ENOXAPARIN [Concomitant]
     Active Substance: ENOXAPARIN
  36. FENTANYL. [Concomitant]
     Active Substance: FENTANYL
  37. DILAUDID [Concomitant]
     Active Substance: HYDROMORPHONE HYDROCHLORIDE
  38. TYLENOL [Concomitant]
     Active Substance: ACETAMINOPHEN
  39. CLARITIN [Concomitant]
     Active Substance: LORATADINE
  40. SALINE [Concomitant]
     Active Substance: SODIUM CHLORIDE
  41. SUCCINYLCHOLINE [Concomitant]
     Active Substance: SUCCINYLCHOLINE
  42. ZOSTAVAX [Concomitant]
     Active Substance: VARICELLA-ZOSTER VIRUS STRAIN OKA/MERCK LIVE ANTIGEN
  43. AMLODIPINE [Concomitant]
     Active Substance: AMLODIPINE BESYLATE
  44. NEXIUM [Suspect]
     Active Substance: ESOMEPRAZOLE MAGNESIUM
     Indication: GASTROOESOPHAGEAL REFLUX DISEASE
     Dosage: GENERIC
     Route: 065
     Dates: start: 20140924, end: 20150120
  45. FUROSEMIDE. [Concomitant]
     Active Substance: FUROSEMIDE
     Indication: DRUG ABUSE
  46. MULTIVITAMINS [Concomitant]
     Active Substance: VITAMINS
     Indication: HYPOVITAMINOSIS
  47. CHOLESTYRAMINE. [Concomitant]
     Active Substance: CHOLESTYRAMINE
  48. CYCLOBENZAPRINE. [Concomitant]
     Active Substance: CYCLOBENZAPRINE
  49. ZOLPIDEM TARTRATE. [Concomitant]
     Active Substance: ZOLPIDEM TARTRATE
  50. HYDROCHLOROTHIAZIDE. [Concomitant]
     Active Substance: HYDROCHLOROTHIAZIDE
  51. BUSPIRONE HYDROCHLORIDE. [Concomitant]
     Active Substance: BUSPIRONE HYDROCHLORIDE
  52. METOPROLOL SUCCINATE. [Concomitant]
     Active Substance: METOPROLOL SUCCINATE
  53. MELOXICAM. [Concomitant]
     Active Substance: MELOXICAM
  54. BISACODYL. [Concomitant]
     Active Substance: BISACODYL
  55. VERSED [Concomitant]
     Active Substance: MIDAZOLAM HYDROCHLORIDE
  56. CEPHALEXIN. [Concomitant]
     Active Substance: CEPHALEXIN
  57. VITAMIN D3 [Concomitant]
     Active Substance: CHOLECALCIFEROL
  58. AMMONIUM CHLORIDE. [Concomitant]
     Active Substance: AMMONIUM CHLORIDE
  59. OXYCODONE HYDROCHLORIDE. [Concomitant]
     Active Substance: OXYCODONE HYDROCHLORIDE
  60. METFORMIN HYDROCHLORIDE. [Concomitant]
     Active Substance: METFORMIN HYDROCHLORIDE
  61. DOCQLACE [Concomitant]
     Active Substance: DOCUSATE SODIUM
  62. LACTOBACILLUS ACIDOPHILUS [Concomitant]
     Active Substance: LACTOBACILLUS ACIDOPHILUS
  63. DOXAZOSIN MESYLATE. [Concomitant]
     Active Substance: DOXAZOSIN MESYLATE
  64. NEXIUM 24HR [Suspect]
     Active Substance: ESOMEPRAZOLE MAGNESIUM
     Indication: GASTROOESOPHAGEAL REFLUX DISEASE
     Route: 048
     Dates: start: 200909, end: 201409
  65. LISINOPRIL. [Concomitant]
     Active Substance: LISINOPRIL
     Indication: HYPERTENSION
  66. PEPCID [Concomitant]
     Active Substance: FAMOTIDINE
  67. HYDRALAZINE [Concomitant]
     Active Substance: HYDRALAZINE HYDROCHLORIDE
  68. POTASSIUM CHLORIDE. [Concomitant]
     Active Substance: POTASSIUM CHLORIDE
  69. BYDUREON [Concomitant]
     Active Substance: EXENATIDE
  70. HYDROMORPHONE [Concomitant]
     Active Substance: HYDROMORPHONE
  71. FERROUS GLUCONATE [Concomitant]
     Active Substance: FERROUS GLUCONATE
  72. CICLOPIROX. [Concomitant]
     Active Substance: CICLOPIROX
  73. ERYTHROMYCIN. [Concomitant]
     Active Substance: ERYTHROMYCIN
  74. FLUCONAZOLE. [Concomitant]
     Active Substance: FLUCONAZOLE
  75. ONDANSETRON HCL [Concomitant]
     Active Substance: ONDANSETRON HYDROCHLORIDE
  76. SULFAMETHOXAZOLE [Concomitant]
     Active Substance: SULFAMETHOXAZOLE
  77. FERROUS OXIDE. [Concomitant]
     Active Substance: FERROUS OXIDE
  78. FOLIC ACID. [Concomitant]
     Active Substance: FOLIC ACID

REACTIONS (3)
  - Renal failure [Unknown]
  - Death [Fatal]
  - Chronic kidney disease [Unknown]

NARRATIVE: CASE EVENT DATE: 201409
